FAERS Safety Report 17880994 (Version 1)
Quarter: 2020Q2

REPORT INFORMATION
  Report Type: Spontaneous
  Country: US (occurrence: US)
  Receive Date: 20200610
  Receipt Date: 20200610
  Transmission Date: 20200714
  Serious: No
  Sender: FDA-Public Use
  Company Number: US-GLAXOSMITHKLINE-US2020096488

PATIENT
  Sex: Female

DRUGS (1)
  1. BREO ELLIPTA [Suspect]
     Active Substance: FLUTICASONE FUROATE\VILANTEROL TRIFENATATE
     Indication: CHRONIC OBSTRUCTIVE PULMONARY DISEASE
     Dosage: 1 PUFF(S), QD
     Route: 055
     Dates: start: 20200525

REACTIONS (11)
  - Dyspnoea [Unknown]
  - Oral pain [Not Recovered/Not Resolved]
  - Mouth swelling [Unknown]
  - Gingival erythema [Unknown]
  - Cheilitis [Not Recovered/Not Resolved]
  - Cough [Unknown]
  - Gingival discomfort [Unknown]
  - Peripheral swelling [Unknown]
  - Oral mucosal erythema [Not Recovered/Not Resolved]
  - Choking sensation [Unknown]
  - Candida infection [Not Recovered/Not Resolved]

NARRATIVE: CASE EVENT DATE: 2020
